FAERS Safety Report 5288876-X (Version None)
Quarter: 2007Q2

REPORT INFORMATION
  Report Type: 
  Country: None (occurrence: None)
  Receive Date: 20070405
  Receipt Date: 20070328
  Transmission Date: 20071010
  Serious: Yes (Life-Threatening)
  Sender: FDA-Public Use
  Company Number: FR-PFIZER INC-2007017060

PATIENT
  Age: 15 Year
  Sex: Male
  Weight: 57 kg

DRUGS (3)
  1. PIROXICAM [Suspect]
     Indication: ABDOMINAL PAIN
     Route: 048
     Dates: start: 20070207, end: 20070214
  2. DOMPERIDONE [Suspect]
     Indication: ABDOMINAL PAIN
     Dates: start: 20070207, end: 20070214
  3. SPASFON [Suspect]
     Indication: ABDOMINAL PAIN
     Dosage: TEXT:3 DF
     Route: 048
     Dates: start: 20070207, end: 20070214

REACTIONS (2)
  - DUODENAL ULCER PERFORATION [None]
  - PERITONITIS [None]
